FAERS Safety Report 4292200-9 (Version None)
Quarter: 2004Q1

REPORT INFORMATION
  Report Type: 
  Country: None (occurrence: None)
  Receive Date: 20040126
  Receipt Date: 20030917
  Transmission Date: 20041129
  Serious: No
  Sender: FDA-Public Use
  Company Number: USA030742117

PATIENT
  Age: 75 Year
  Sex: Female
  Weight: 52 kg

DRUGS (8)
  1. FORTEO [Suspect]
     Indication: OSTEOPOROSIS
     Dosage: 20UG/DAY
     Dates: start: 20030714
  2. MULTIVITAMIN [Concomitant]
  3. TUMS (CALCIUM CARBONATE) [Concomitant]
  4. CALTRATE (CALCIUM CARBONATE) [Concomitant]
  5. ATENOLOL [Concomitant]
     Indication: BLOOD PRESSURE
  6. ZOCOR [Concomitant]
     Indication: BLOOD CHOLESTEROL
  7. AVAPRO [Concomitant]
     Indication: BLOOD PRESSURE
  8. NORVASC [Concomitant]

REACTIONS (4)
  - DIZZINESS [None]
  - HEART RATE IRREGULAR [None]
  - INJECTION SITE STINGING [None]
  - LOWER EXTREMITY MASS [None]
